FAERS Safety Report 13274213 (Version 2)
Quarter: 2017Q1

REPORT INFORMATION
  Report Type: Spontaneous
  Country: US (occurrence: US)
  Receive Date: 20170227
  Receipt Date: 20170310
  Transmission Date: 20170428
  Serious: No
  Sender: FDA-Public Use
  Company Number: US-009507513-1702USA004209

PATIENT
  Age: 38 Year
  Sex: Female
  Weight: 62.59 kg

DRUGS (4)
  1. AZATHIOPRINE. [Concomitant]
     Active Substance: AZATHIOPRINE
  2. NUVARING [Suspect]
     Active Substance: ETHINYL ESTRADIOL\ETONOGESTREL
     Dosage: ^INSERT A RING ON THE 1ST DAY OF THE MONTH THEN TAKES IT OUT THE 26 OF MONTH, THEN HAS A BREAK^
     Route: 067
  3. HUMIRA [Concomitant]
     Active Substance: ADALIMUMAB
  4. NUVARING [Suspect]
     Active Substance: ETHINYL ESTRADIOL\ETONOGESTREL
     Indication: CONTRACEPTION
     Dosage: ^INSERT A RING ON THE 1ST DAY OF THE MONTH THEN TAKES IT OUT THE 26 OF MONTH, THEN HAS A BREAK^
     Route: 067
     Dates: start: 20170202, end: 20170207

REACTIONS (3)
  - Product quality issue [Unknown]
  - Incorrect drug administration duration [Unknown]
  - Medical device discomfort [Unknown]

NARRATIVE: CASE EVENT DATE: 20170202
